FAERS Safety Report 10576775 (Version 1)
Quarter: 2014Q4

REPORT INFORMATION
  Report Type: Spontaneous
  Country: US (occurrence: None)
  Receive Date: 20141110
  Receipt Date: 20141110
  Transmission Date: 20150529
  Serious: Yes (Other)
  Sender: FDA-Public Use
  Company Number: None

PATIENT
  Age: 45 Year
  Sex: Female
  Weight: 66.68 kg

DRUGS (1)
  1. PLIAGLIS [Suspect]
     Active Substance: LIDOCAINE\TETRACAINE
     Indication: LOCAL ANAESTHESIA
     Dosage: ONE DOSE, APPLIED TO A SURFACE, USUALLY THE SKIN
     Dates: start: 20141107

REACTIONS (4)
  - Application site swelling [None]
  - Application site erythema [None]
  - Chloasma [None]
  - Application site discolouration [None]

NARRATIVE: CASE EVENT DATE: 20141107
